FAERS Safety Report 8180707-3 (Version None)
Quarter: 2012Q1

REPORT INFORMATION
  Report Type: 
  Country: None (occurrence: None)
  Receive Date: 20120301
  Receipt Date: 20120301
  Transmission Date: 20120608
  Serious: Yes (Hospitalization)
  Sender: FDA-Public Use
  Company Number: None

PATIENT
  Sex: Male
  Weight: 95.2554 kg

DRUGS (4)
  1. ASPIRIN [Concomitant]
  2. PLAVIX [Concomitant]
  3. PRADAXA [Suspect]
     Dosage: 150 MG BID ORAL
     Route: 048
  4. MULTAQ [Concomitant]

REACTIONS (3)
  - FATIGUE [None]
  - EPISTAXIS [None]
  - EMOTIONAL DISORDER [None]
